FAERS Safety Report 9456825 (Version 2)
Quarter: 2014Q1

REPORT INFORMATION
  Report Type: Spontaneous
  Country: US (occurrence: US)
  Receive Date: 20130813
  Receipt Date: 20140115
  Transmission Date: 20141002
  Serious: Yes (Hospitalization)
  Sender: FDA-Public Use
  Company Number: US-B.I. PHARMACEUTICALS,INC./RIDGEFIELD-2013-BI-24034BP

PATIENT
  Sex: Female
  Weight: 68.04 kg

DRUGS (16)
  1. PRADAXA [Suspect]
     Indication: ATRIAL FIBRILLATION
     Dosage: 150 MG
     Route: 048
     Dates: start: 20110322
  2. AMARYL [Concomitant]
     Dosage: 4 MG
     Route: 048
  3. ATIVAN [Concomitant]
     Dosage: 0.5 MG
     Route: 048
  4. COREG [Concomitant]
     Dosage: 25 MG
     Route: 048
  5. DIGOXIN [Concomitant]
     Dosage: 0.125 MG
     Route: 048
  6. INSPRA [Concomitant]
     Dosage: 25 MG
     Route: 048
  7. JANUVIA [Concomitant]
     Dosage: 100 MG
     Route: 048
  8. LEVOTHROID [Concomitant]
     Dosage: 100 MCG
     Route: 048
  9. POTASSIUM [Concomitant]
     Dosage: 10 MEQ
     Route: 048
  10. TORSEMIDE [Concomitant]
     Dosage: 20 MG
     Route: 048
  11. TRAMADOL [Concomitant]
     Route: 048
  12. VITAMIN D [Concomitant]
     Dosage: 2000 MG
     Route: 048
  13. ZEMPLAR [Concomitant]
     Route: 048
  14. DULCOLAX [Concomitant]
     Route: 048
  15. BUSPAR [Concomitant]
     Dosage: 25 MG
     Route: 048
  16. DIOVAN [Concomitant]
     Dosage: 40 MG
     Route: 048

REACTIONS (4)
  - Gastrointestinal haemorrhage [Unknown]
  - Anaemia [Unknown]
  - Embolism arterial [Recovered/Resolved]
  - Coagulopathy [Unknown]
